FAERS Safety Report 4308344-9 (Version None)
Quarter: 2004Q1

REPORT INFORMATION
  Report Type: 
  Country: None (occurrence: None)
  Receive Date: 20040301
  Receipt Date: 20040224
  Transmission Date: 20041129
  Serious: Yes (Death, Life-Threatening)
  Sender: FDA-Public Use
  Company Number: 200410752FR

PATIENT
  Age: 93 Year
  Sex: Female

DRUGS (8)
  1. LASILIX RETARD [Suspect]
     Route: 048
     Dates: start: 20030926, end: 20030930
  2. DILTIAZEM [Suspect]
     Indication: ESSENTIAL HYPERTENSION
     Route: 048
     Dates: end: 20031006
  3. PREVISCAN 20 MG [Suspect]
     Indication: ARRHYTHMIA
     Route: 048
     Dates: end: 20030926
  4. HEMIGOXINE NATIVELLE [Suspect]
     Indication: ARRHYTHMIA
     Route: 048
     Dates: end: 20031006
  5. SURGAM [Suspect]
     Route: 048
     Dates: start: 20030916, end: 20030918
  6. ALDALIX [Suspect]
     Indication: ESSENTIAL HYPERTENSION
     Route: 048
     Dates: end: 20030926
  7. LEVOTHYROXINE SODIUM [Concomitant]
     Route: 048
     Dates: end: 20031016
  8. IMOVANE [Concomitant]
     Route: 048
     Dates: end: 20031002

REACTIONS (3)
  - GASTRIC ULCER [None]
  - HAEMATEMESIS [None]
  - RENAL FAILURE ACUTE [None]
